FAERS Safety Report 11754272 (Version 1)
Quarter: 2015Q4

REPORT INFORMATION
  Report Type: Spontaneous
  Country: US (occurrence: None)
  Receive Date: 20151119
  Receipt Date: 20151119
  Transmission Date: 20160304
  Serious: Yes (Other)
  Sender: FDA-Public Use
  Company Number: US-MDT-ADR-2015-02190

PATIENT
  Sex: Male

DRUGS (1)
  1. LIORESAL [Suspect]
     Active Substance: BACLOFEN
     Indication: MUSCLE SPASTICITY
     Dosage: 586 MCG/DAY

REACTIONS (5)
  - Wound [None]
  - Medical device site scar [None]
  - Procedural pain [None]
  - Injury associated with device [None]
  - Medical device site fibrosis [None]
